FAERS Safety Report 6768606-2 (Version None)
Quarter: 2010Q2

REPORT INFORMATION
  Report Type: 
  Country: None (occurrence: None)
  Receive Date: 20100614
  Receipt Date: 20100602
  Transmission Date: 20101027
  Serious: Yes (Hospitalization, Other)
  Sender: FDA-Public Use
  Company Number: JP-PFIZER INC-2010068190

PATIENT
  Age: 70 Year
  Sex: Female
  Weight: 41.4 kg

DRUGS (12)
  1. SILDENAFIL CITRATE [Suspect]
     Indication: PULMONARY HYPERTENSION
     Dosage: 40 MG, 2X/DAY
     Route: 048
     Dates: start: 20100126, end: 20100312
  2. SILDENAFIL CITRATE [Suspect]
     Dosage: 60 MG, 3X/DAY
     Route: 048
     Dates: start: 20100313
  3. DORNER [Concomitant]
     Indication: PULMONARY HYPERTENSION
     Dosage: UNK %, UNK
     Route: 048
     Dates: end: 20100126
  4. WARFARIN [Concomitant]
     Indication: PULMONARY HYPERTENSION
     Dosage: UNK
     Route: 048
  5. GASTER [Concomitant]
     Dosage: UNK
  6. KINEDAK [Concomitant]
     Dosage: UNK
     Route: 048
  7. STARSIS [Concomitant]
     Dosage: UNK
     Route: 048
     Dates: end: 20100412
  8. THYRADIN S [Concomitant]
     Dosage: UNK
     Route: 048
  9. AMITRIPTYLINE HCL [Concomitant]
     Dosage: UNK
     Route: 048
  10. MEXITIL [Concomitant]
     Dosage: UNK
     Route: 048
     Dates: end: 20100318
  11. VALSARTAN [Concomitant]
     Dosage: UNK
     Route: 048
  12. ADALAT CC [Concomitant]
     Dosage: UNK
     Route: 048
     Dates: end: 20100417

REACTIONS (2)
  - CARDIAC FAILURE CONGESTIVE [None]
  - HYPOTENSION [None]
